FAERS Safety Report 21193933 (Version 2)
Quarter: 2025Q4

REPORT INFORMATION
  Report Type: Spontaneous
  Country: US (occurrence: US)
  Receive Date: 20220810
  Receipt Date: 20251022
  Transmission Date: 20260118
  Serious: No
  Sender: ORGANON
  Company Number: US-ORGANON-O2208USA000550

PATIENT
  Age: 81 Year
  Sex: Female

DRUGS (2)
  1. ASMANEX [Suspect]
     Active Substance: MOMETASONE FUROATE
     Dosage: 2 PUFFS TWICE A DAY, 120 DOSE
     Dates: start: 20220801
  2. ASMANEX [Suspect]
     Active Substance: MOMETASONE FUROATE
     Dosage: 220MCG 2 INHALATIONS TWICE DAILY
     Dates: start: 20251013

REACTIONS (6)
  - Device malfunction [Unknown]
  - Poor quality device used [Unknown]
  - Wrong technique in device usage process [Unknown]
  - No adverse event [Unknown]
  - Device malfunction [Unknown]
  - Poor quality device used [Unknown]

NARRATIVE: CASE EVENT DATE: 20220801
